FAERS Safety Report 21528386 (Version 1)
Quarter: 2022Q4

REPORT INFORMATION
  Report Type: Spontaneous
  Country: US (occurrence: US)
  Receive Date: 20221031
  Receipt Date: 20221031
  Transmission Date: 20230112
  Serious: Yes (Other)
  Sender: FDA-Public Use
  Company Number: US-BAYER-2022A149696

PATIENT
  Age: 48 Year
  Sex: Female

DRUGS (2)
  1. SORAFENIB [Suspect]
     Active Substance: SORAFENIB
     Indication: Soft tissue disorder
     Dosage: 400 MG, QD
  2. SORAFENIB [Suspect]
     Active Substance: SORAFENIB
     Indication: Desmoid tumour

REACTIONS (13)
  - Mucosal inflammation [None]
  - Palmar-plantar erythrodysaesthesia syndrome [None]
  - Systemic toxicity [None]
  - Erythema [None]
  - Paraesthesia [None]
  - Blister [None]
  - Hyperkeratosis [None]
  - Pain [None]
  - Gait disturbance [None]
  - Off label use [None]
  - Wheelchair user [None]
  - Gait disturbance [Recovering/Resolving]
  - Skin lesion [Recovered/Resolved]
